FAERS Safety Report 4887070-1 (Version None)
Quarter: 2006Q1

REPORT INFORMATION
  Report Type: 
  Country: None (occurrence: None)
  Receive Date: 20060120
  Receipt Date: 20051005
  Transmission Date: 20060701
  Serious: Yes (Hospitalization)
  Sender: FDA-Public Use
  Company Number: US-MERCK-0510USA04671

PATIENT
  Sex: Female
  Weight: 89 kg

DRUGS (5)
  1. VIOXX [Suspect]
     Indication: BACK PAIN
     Route: 048
     Dates: end: 20041101
  2. VIOXX [Suspect]
     Route: 048
     Dates: start: 20030308
  3. VIOXX [Suspect]
     Indication: ARTHRITIS
     Route: 048
     Dates: end: 20041101
  4. VIOXX [Suspect]
     Route: 048
     Dates: start: 20030308
  5. ALEVE [Concomitant]
     Route: 065

REACTIONS (5)
  - ANXIETY [None]
  - DYSPNOEA [None]
  - HEART RATE INCREASED [None]
  - NERVOUSNESS [None]
  - RESPIRATORY DISTRESS [None]
